FAERS Safety Report 6506291-5 (Version None)
Quarter: 2009Q4

REPORT INFORMATION
  Report Type: 
  Country: None (occurrence: None)
  Receive Date: 20091218
  Receipt Date: 20091208
  Transmission Date: 20100525
  Serious: Yes (Hospitalization)
  Sender: FDA-Public Use
  Company Number: US-ABBOTT-09P-163-0613158-05

PATIENT
  Sex: Female

DRUGS (29)
  1. HUMIRA [Suspect]
     Indication: CROHN'S DISEASE
     Route: 058
  2. REMERON [Concomitant]
     Indication: POST-TRAUMATIC STRESS DISORDER
     Dates: start: 20070601
  3. REMERON [Concomitant]
     Indication: GASTROINTESTINAL PAIN
  4. XANAX [Concomitant]
     Indication: ANXIETY
     Dates: start: 20040601
  5. TYLENOL (CAPLET) [Concomitant]
     Indication: ARTHRALGIA
     Dates: start: 20030901
  6. PREDNISONE [Concomitant]
     Indication: CROHN'S DISEASE
     Dosage: 30 MG AND TAPER TO 15 MG
     Dates: start: 20080401, end: 20080501
  7. PREDNISONE [Concomitant]
     Dates: start: 20081101, end: 20090101
  8. PREDNISONE [Concomitant]
     Dates: start: 20080501, end: 20090801
  9. DONNATAL [Concomitant]
     Indication: ABDOMINAL PAIN
     Dates: start: 20081101, end: 20081201
  10. DESIPRAMINE [Concomitant]
     Indication: DEPRESSION
     Dates: start: 20090101, end: 20090201
  11. CIPROFLOXACIN [Concomitant]
     Indication: INFECTION
     Dates: start: 20081101, end: 20081201
  12. FENTANYL-100 [Concomitant]
     Indication: ABDOMINAL PAIN
     Dates: start: 20081201, end: 20090501
  13. COUMADIN [Concomitant]
     Indication: DEEP VEIN THROMBOSIS
     Dates: start: 20081201, end: 20090601
  14. DILAUDID [Concomitant]
     Indication: ABDOMINAL PAIN
     Dates: start: 20081201, end: 20090501
  15. VITAMIN D [Concomitant]
     Indication: VITAMIN D DEFICIENCY
     Dates: start: 20081101
  16. ROWASA [Concomitant]
     Indication: CROHN'S DISEASE
     Dates: start: 20081101, end: 20090501
  17. ROWASA [Concomitant]
     Dates: start: 20090501
  18. LIDOCAINE [Concomitant]
     Indication: ABDOMINAL PAIN
     Dosage: 1 PATCH (5%)
     Dates: start: 20081101
  19. MIRALAX [Concomitant]
     Indication: CONSTIPATION
     Dates: start: 20081101
  20. COLACE [Concomitant]
     Indication: CONSTIPATION
     Dates: start: 20081101
  21. CYMBALTA [Concomitant]
     Indication: DEPRESSION
     Dates: start: 20081101, end: 20081201
  22. ALBUTEROL [Concomitant]
     Indication: ASTHMA
     Dosage: INHALER
     Dates: start: 20081030
  23. FLEXERIL [Concomitant]
     Indication: PAIN
     Dates: start: 20081001
  24. ATARAX [Concomitant]
     Indication: ANXIETY
     Route: 030
     Dates: start: 20081030, end: 20081118
  25. INSULIN [Concomitant]
     Indication: DIABETES MELLITUS
     Dates: start: 20081030, end: 20081118
  26. REGLAN [Concomitant]
     Indication: NAUSEA
     Route: 042
     Dates: start: 20081030, end: 20081206
  27. ZOFRAN [Concomitant]
     Indication: NAUSEA
     Route: 042
     Dates: start: 20081030, end: 20081206
  28. PROTONIX [Concomitant]
     Indication: GASTROOESOPHAGEAL REFLUX DISEASE
     Dates: start: 20081030, end: 20081201
  29. VENTOLIN [Concomitant]
     Indication: ASTHMA

REACTIONS (4)
  - ABDOMINAL PAIN [None]
  - DEEP VEIN THROMBOSIS [None]
  - DEHYDRATION [None]
  - PNEUMONITIS [None]
